FAERS Safety Report 7745198 (Version 5)
Quarter: 2013Q1

REPORT INFORMATION
  Report Type: Spontaneous
  Country: US (occurrence: US)
  Receive Date: 20101231
  Receipt Date: 20130226
  Transmission Date: 20140127
  Serious: Yes (Hospitalization, Other)
  Sender: FDA-Public Use
  Company Number: US-BAYER-2010-008973

PATIENT
  Age: 41 Year
  Sex: Female
  Weight: 63.6 kg

DRUGS (11)
  1. YAZ [Suspect]
     Indication: CONTRACEPTION
     Dosage: UNK
     Dates: start: 20020724, end: 200909
  2. YASMIN [Suspect]
     Indication: CONTRACEPTION
     Dosage: UNK
     Dates: start: 20020724, end: 200909
  3. LEXAPRO [Concomitant]
     Indication: MIGRAINE
     Dosage: 20 MG, QD
     Route: 048
     Dates: start: 2005
  4. AMBIEN [Concomitant]
     Indication: POOR QUALITY SLEEP
     Dosage: 5 MG, UNK
     Route: 048
     Dates: start: 2005
  5. PATANOL [Concomitant]
     Route: 061
  6. PREMESISRX [Concomitant]
     Dosage: UNK
     Route: 048
     Dates: start: 20090826
  7. DIAZEPAM [Concomitant]
     Dosage: 2 MG, PRN
     Route: 048
     Dates: start: 20090826
  8. IMITREX [Concomitant]
     Dosage: 100 MG, UNK
     Route: 048
     Dates: end: 20090909
  9. AXERT [Concomitant]
     Dosage: UNK
     Dates: end: 20090910
  10. KEPPRA [Concomitant]
  11. NERVOUS SYSTEM [Concomitant]
     Dosage: UNK
     Dates: end: 20090912

REACTIONS (19)
  - Transverse sinus thrombosis [Recovered/Resolved]
  - Cerebral haemorrhage [Recovered/Resolved]
  - Superior sagittal sinus thrombosis [None]
  - Cerebrovascular accident [Recovered/Resolved]
  - Brain injury [Recovered/Resolved]
  - Nervous system disorder [Recovered/Resolved]
  - Cerebral thrombosis [Recovered/Resolved]
  - Thrombosis [None]
  - Pelvic venous thrombosis [None]
  - Cognitive disorder [Recovered/Resolved]
  - Migraine [None]
  - Depression [None]
  - Pain [Recovered/Resolved]
  - Emotional distress [Recovered/Resolved]
  - Balance disorder [Recovered/Resolved]
  - Gait disturbance [Recovered/Resolved]
  - Amnesia [Recovered/Resolved]
  - Grand mal convulsion [Recovered/Resolved]
  - Speech disorder [Recovered/Resolved]
